FAERS Safety Report 19486798 (Version 1)
Quarter: 2021Q3

REPORT INFORMATION
  Report Type: Spontaneous
  Country: IN (occurrence: IN)
  Receive Date: 20210702
  Receipt Date: 20210702
  Transmission Date: 20211014
  Serious: Yes (Death)
  Sender: FDA-Public Use
  Company Number: NVSC2021IN148717

PATIENT
  Age: 59 Year
  Sex: Male

DRUGS (1)
  1. PAGENAX [Suspect]
     Active Substance: BROLUCIZUMAB
     Indication: CHOROIDAL NEOVASCULARISATION
     Dosage: 0.05 ML, QMO
     Route: 047
     Dates: start: 20210224

REACTIONS (2)
  - Off label use [Unknown]
  - Death [Fatal]
